FAERS Safety Report 16478305 (Version 1)
Quarter: 2019Q2

REPORT INFORMATION
  Report Type: Report from Study
  Country: US (occurrence: US)
  Receive Date: 20190626
  Receipt Date: 20190626
  Transmission Date: 20190711
  Serious: Yes (Hospitalization, Other)
  Sender: FDA-Public Use
  Company Number: US-PFIZER INC-2019186072

PATIENT
  Age: 65 Year
  Sex: Male

DRUGS (2)
  1. SUTENT [Suspect]
     Active Substance: SUNITINIB MALATE
     Dosage: 50 MG, CYCLIC (50MG 4 WEEKS ON, 2 WEEKS OFF)
     Route: 048
     Dates: start: 20190527
  2. SUTENT [Suspect]
     Active Substance: SUNITINIB MALATE
     Indication: RENAL CELL CARCINOMA
     Dosage: 50 MG, CYCLIC(50MG 4 WEEKS ON, 2 WEEKS OFF)/[DAILY/28 DAYS ON, 14 DAYS OFF]
     Route: 048
     Dates: start: 20190415

REACTIONS (9)
  - Gastrooesophageal reflux disease [Unknown]
  - Fatigue [Recovering/Resolving]
  - Diarrhoea [Recovering/Resolving]
  - Deep vein thrombosis [Unknown]
  - Peripheral swelling [Recovering/Resolving]
  - Respiratory failure [Unknown]
  - Hypoglycaemia [Recovered/Resolved]
  - Hyperglycaemia [Unknown]
  - Muscular weakness [Recovering/Resolving]
